FAERS Safety Report 10008543 (Version 1)
Quarter: 2014Q1

REPORT INFORMATION
  Report Type: Spontaneous
  Country: US (occurrence: US)
  Receive Date: 20140313
  Receipt Date: 20140313
  Transmission Date: 20141002
  Serious: Yes (Hospitalization, Other)
  Sender: FDA-Public Use
  Company Number: US-ABBVIE-14P-163-1210088-00

PATIENT
  Age: 56 Year
  Sex: Male
  Weight: 104.42 kg

DRUGS (4)
  1. HUMIRA [Suspect]
     Indication: PSORIASIS
     Dates: start: 200602, end: 2010
  2. HUMIRA [Suspect]
     Dates: start: 2010, end: 20131217
  3. LIPITOR [Concomitant]
     Indication: BLOOD CHOLESTEROL INCREASED
  4. TOPICAL STEROIDS [Concomitant]
     Indication: PSORIASIS

REACTIONS (11)
  - Cardiomegaly [Not Recovered/Not Resolved]
  - Cerebrovascular accident [Recovered/Resolved]
  - Cardiac failure [Recovered/Resolved]
  - Myocardial infarction [Recovered/Resolved]
  - Unevaluable event [Recovered/Resolved]
  - Abnormal dreams [Recovered/Resolved]
  - Fall [Recovered/Resolved]
  - Hemiplegia [Recovered/Resolved]
  - Left ventricular failure [Unknown]
  - Consciousness fluctuating [Recovered/Resolved]
  - Platelet disorder [Unknown]
